FAERS Safety Report 10994432 (Version 1)
Quarter: 2015Q2

REPORT INFORMATION
  Report Type: Spontaneous
  Country: CZ (occurrence: CZ)
  Receive Date: 20150407
  Receipt Date: 20150407
  Transmission Date: 20150821
  Serious: Yes (Life-Threatening, Hospitalization)
  Sender: FDA-Public Use
  Company Number: US-ASTRAZENECA-2015SE31292

PATIENT
  Age: 180 Day
  Sex: Female
  Weight: 6 kg

DRUGS (5)
  1. PAMYCON NA PRIPRAVU [Concomitant]
     Indication: OTITIS EXTERNA
     Dosage: EVERY DAY
     Route: 001
  2. PAMYCON NA PRIPRAVU [Concomitant]
     Indication: PROPHYLAXIS
     Dosage: EVERY DAY
     Route: 048
  3. SYNAGIS [Suspect]
     Active Substance: PALIVIZUMAB
     Indication: PROPHYLAXIS
     Route: 030
     Dates: start: 20141126, end: 20150312
  4. PAMYCON NA PRIPRAVU [Concomitant]
     Indication: OTITIS EXTERNA
     Dosage: EVERY DAY
     Route: 048
  5. PAMYCON NA PRIPRAVU [Concomitant]
     Indication: PROPHYLAXIS
     Dosage: EVERY DAY
     Route: 001

REACTIONS (3)
  - Cyanosis [Recovered/Resolved]
  - Hypotonia [Recovered/Resolved]
  - Apnoea [Recovered/Resolved]

NARRATIVE: CASE EVENT DATE: 20150312
